FAERS Safety Report 7209729-3 (Version None)
Quarter: 2011Q1

REPORT INFORMATION
  Report Type: 
  Country: None (occurrence: None)
  Receive Date: 20110104
  Receipt Date: 20101221
  Transmission Date: 20110831
  Serious: Yes (Disabling, Other)
  Sender: FDA-Public Use
  Company Number: GB-AMGEN-US200452

PATIENT

DRUGS (3)
  1. ENBREL [Interacting]
     Dosage: 25 MG, QWK
     Dates: start: 20060101
  2. PHENYTOIN [Interacting]
     Dosage: 100 MG, BID
     Route: 048
     Dates: start: 19980420
  3. ENBREL [Suspect]
     Dosage: 25 MG, 2 TIMES/WK
     Route: 065
     Dates: start: 20051001

REACTIONS (3)
  - WEIGHT DECREASED [None]
  - BLOOD ALKALINE PHOSPHATASE INCREASED [None]
  - DRUG INTERACTION [None]
